FAERS Safety Report 21253655 (Version 1)
Quarter: 2022Q3

REPORT INFORMATION
  Report Type: Spontaneous
  Country: US (occurrence: None)
  Receive Date: 20220824
  Receipt Date: 20220824
  Transmission Date: 20221027
  Serious: No
  Sender: FDA-Public Use
  Company Number: None

PATIENT
  Sex: Male

DRUGS (1)
  1. TETRABENAZINE [Suspect]
     Active Substance: TETRABENAZINE
     Indication: Tourette^s disorder
     Dosage: 25MG TWICE DAILY ORAL
     Route: 048
     Dates: start: 202207, end: 20220823

REACTIONS (4)
  - Drug ineffective [None]
  - Pain [None]
  - Tourette^s disorder [None]
  - Therapy cessation [None]
